FAERS Safety Report 12413927 (Version 1)
Quarter: 2016Q2

REPORT INFORMATION
  Report Type: Spontaneous
  Country: FR (occurrence: FR)
  Receive Date: 20160527
  Receipt Date: 20160527
  Transmission Date: 20160815
  Serious: Yes (Other)
  Sender: FDA-Public Use
  Company Number: PHHY2016FR071802

PATIENT
  Age: 53 Year
  Sex: Female

DRUGS (3)
  1. VALSARTAN. [Concomitant]
     Active Substance: VALSARTAN
     Indication: PRODUCT USED FOR UNKNOWN INDICATION
     Dosage: 80 MG, UNK
     Route: 065
  2. AZITHROMYCIN SANDOZ [Suspect]
     Active Substance: AZITHROMYCIN ANHYDROUS
     Indication: TONSILLITIS
     Dosage: 2 DF, QD
     Route: 048
     Dates: start: 20160423, end: 20160425
  3. PREDNISOLONE SANDOZ [Suspect]
     Active Substance: PREDNISOLONE
     Indication: TONSILLITIS
     Dosage: 2 DF, QD
     Route: 048
     Dates: start: 20160423, end: 20160425

REACTIONS (3)
  - Erythema [Recovered/Resolved]
  - Vasoconstriction [Recovering/Resolving]
  - Burning sensation [Recovered/Resolved]

NARRATIVE: CASE EVENT DATE: 20160425
